FAERS Safety Report 18024538 (Version 4)
Quarter: 2020Q3

REPORT INFORMATION
  Report Type: Report from Study
  Country: None (occurrence: US)
  Receive Date: 20200714
  Receipt Date: 20200923
  Transmission Date: 20201103
  Serious: Yes (Hospitalization)
  Sender: FDA-Public Use
  Company Number: US-ABBVIE-20K-163-3480357-00

PATIENT
  Sex: Female

DRUGS (3)
  1. HUMIRA [Suspect]
     Active Substance: ADALIMUMAB
     Route: 058
     Dates: start: 20200724, end: 202008
  2. HUMIRA [Suspect]
     Active Substance: ADALIMUMAB
     Route: 058
     Dates: start: 2020, end: 2020
  3. HUMIRA [Suspect]
     Active Substance: ADALIMUMAB
     Indication: PSORIASIS
     Dosage: DAY 1
     Route: 058
     Dates: start: 202006, end: 202006

REACTIONS (12)
  - General physical condition abnormal [Unknown]
  - Emotional disorder [Unknown]
  - Deformity [Unknown]
  - Pain of skin [Unknown]
  - Frustration tolerance decreased [Unknown]
  - Impaired quality of life [Unknown]
  - Anger [Unknown]
  - Skin irritation [Unknown]
  - Pulmonary oedema [Unknown]
  - Helplessness [Unknown]
  - Pruritus [Unknown]
  - Therapeutic product effect incomplete [Not Recovered/Not Resolved]

NARRATIVE: CASE EVENT DATE: 2020
